FAERS Safety Report 9915218 (Version 2)
Quarter: 2014Q2

REPORT INFORMATION
  Report Type: Report from Study
  Country: US (occurrence: US)
  Receive Date: 20140220
  Receipt Date: 20140528
  Transmission Date: 20141212
  Serious: Yes (Other)
  Sender: FDA-Public Use
  Company Number: US-ROCHE-1302049

PATIENT
  Sex: Female

DRUGS (10)
  1. LUCENTIS [Suspect]
     Indication: DIABETIC RETINOPATHY
     Dosage: BOTH EYES
     Route: 065
  2. AVASTIN [Suspect]
     Indication: DIABETIC RETINOPATHY
     Dosage: BOTH EYES
     Route: 065
  3. ACTOS [Concomitant]
  4. METFORMIN [Concomitant]
     Indication: DIABETES MELLITUS
     Route: 048
  5. LIPITOR [Concomitant]
     Route: 065
  6. LIPITOR [Concomitant]
     Route: 065
     Dates: start: 2014
  7. GLIPIZIDE [Concomitant]
  8. ESCITALOPRAM [Concomitant]
     Indication: DEPRESSION
     Route: 065
  9. SAM-E [Concomitant]
     Indication: ARTHRITIS
     Route: 065
     Dates: start: 201405
  10. CMO (CETYL MYRISTOLEATE) [Concomitant]
     Indication: ARTHRITIS
     Route: 065
     Dates: start: 201405

REACTIONS (7)
  - Eye discharge [Not Recovered/Not Resolved]
  - Foreign body sensation in eyes [Not Recovered/Not Resolved]
  - No therapeutic response [Unknown]
  - Ligament sprain [Recovered/Resolved]
  - Arthritis [Recovered/Resolved]
  - Diabetes mellitus [Recovering/Resolving]
  - Blood cholesterol increased [Unknown]
